FAERS Safety Report 6707639-9 (Version None)
Quarter: 2010Q2

REPORT INFORMATION
  Report Type: 
  Country: None (occurrence: None)
  Receive Date: 20100503
  Receipt Date: 20090826
  Transmission Date: 20101027
  Serious: No
  Sender: FDA-Public Use
  Company Number: US-ASTRAZENECA-2009SE09934

PATIENT
  Age: 85 Year
  Sex: Female
  Weight: 61 kg

DRUGS (1)
  1. NEXIUM [Suspect]
     Indication: GASTROOESOPHAGEAL REFLUX DISEASE
     Route: 048
     Dates: start: 20090825

REACTIONS (2)
  - BURN OESOPHAGEAL [None]
  - THROAT IRRITATION [None]
